FAERS Safety Report 17437533 (Version 1)
Quarter: 2020Q1

REPORT INFORMATION
  Report Type: Spontaneous
  Country: DE (occurrence: DE)
  Receive Date: 20200219
  Receipt Date: 20200219
  Transmission Date: 20200409
  Serious: Yes (Congenital Anomaly, Other)
  Sender: FDA-Public Use
  Company Number: DE-ALLERGAN-2007700US

PATIENT
  Sex: Female
  Weight: 2.75 kg

DRUGS (4)
  1. CYTOTEC [Concomitant]
     Active Substance: MISOPROSTOL
     Indication: LABOUR INDUCTION
     Route: 064
     Dates: start: 20190109, end: 20190111
  2. ESCITALOPRAM OXALATE - BP [Suspect]
     Active Substance: ESCITALOPRAM OXALATE
     Indication: DEPRESSION
     Dosage: 15 [MG/D (BIS 10) ]/ DOSAGE WAS INCREASED TO 15 MG/ AT GW 11
     Route: 064
     Dates: start: 20180420, end: 20190111
  3. IBUPROFEN. [Concomitant]
     Active Substance: IBUPROFEN
     Indication: BACK PAIN
     Dosage: 400 [MG/D ]/ ON THREE OCCASSIONS 400 MG EACH.
     Route: 064
  4. FOLSAEURE [Concomitant]
     Active Substance: FOLIC ACID
     Indication: PROPHYLAXIS OF NEURAL TUBE DEFECT
     Route: 064

REACTIONS (6)
  - Coordination abnormal [Unknown]
  - Craniosynostosis [Unknown]
  - Meningocele [Recovered/Resolved with Sequelae]
  - Fallot^s tetralogy [Recovered/Resolved with Sequelae]
  - Hydrocephalus [Unknown]
  - Foetal exposure during pregnancy [Unknown]

NARRATIVE: CASE EVENT DATE: 20190111
